FAERS Safety Report 7952819-8 (Version None)
Quarter: 2011Q4

REPORT INFORMATION
  Report Type: 
  Country: None (occurrence: None)
  Receive Date: 20111201
  Receipt Date: 20111121
  Transmission Date: 20120403
  Serious: Yes (Life-Threatening)
  Sender: FDA-Public Use
  Company Number: US-ELI_LILLY_AND_COMPANY-US201111007425

PATIENT
  Sex: Female

DRUGS (2)
  1. FORTEO [Suspect]
     Dosage: 20 MCG, QD
     Route: 058
  2. DILANTIN [Concomitant]
     Indication: CONVULSION

REACTIONS (2)
  - ATRIOVENTRICULAR BLOCK [None]
  - HEART RATE DECREASED [None]
